FAERS Safety Report 4774316-3 (Version None)
Quarter: 2005Q3

REPORT INFORMATION
  Report Type: 
  Country: None (occurrence: None)
  Receive Date: 20050914
  Receipt Date: 20050401
  Transmission Date: 20060218
  Serious: Yes (Other)
  Sender: FDA-Public Use
  Company Number: 163-20785-05040255

PATIENT
  Sex: Male

DRUGS (6)
  1. THALIDOMIDE OR PLACEBO (THALIDOMIDE) (CAPSULES) [Suspect]
     Indication: PROSTATIC INTRAEPITHELIAL NEOPLASIA
     Dosage: 200 MG, DAILY, ORAL; 100 MG, DAILY, ORAL
     Route: 048
     Dates: start: 20010625
  2. THALIDOMIDE OR PLACEBO (THALIDOMIDE) (CAPSULES) [Suspect]
     Indication: PROSTATIC INTRAEPITHELIAL NEOPLASIA
     Dosage: 200 MG, DAILY, ORAL; 100 MG, DAILY, ORAL
     Route: 048
     Dates: start: 20021028
  3. THALIDOMIDE OR PLACEBO (THALIDOMIDE) (CAPSULES) [Suspect]
     Indication: PROSTATIC INTRAEPITHELIAL NEOPLASIA
     Dosage: 200 MG, DAILY, ORAL; 100 MG, DAILY, ORAL
     Route: 048
     Dates: start: 20030512
  4. LEUPROLIDE (L) OR GOSERLIN (G) UNKNOWN [Suspect]
     Indication: PROSTATIC INTRAEPITHELIAL NEOPLASIA
     Dosage: (L) 7.5MG IM OR (G) 3.6MG SC
     Route: 058
     Dates: start: 20010625
  5. LEUPROLIDE (L) OR GOSERLIN (G) UNKNOWN [Suspect]
     Indication: PROSTATIC INTRAEPITHELIAL NEOPLASIA
     Dosage: (L) 7.5MG IM OR (G) 3.6MG SC
     Route: 058
     Dates: start: 20021028
  6. LEUPROLIDE (L) OR GOSERLIN (G) UNKNOWN [Suspect]
     Indication: PROSTATIC INTRAEPITHELIAL NEOPLASIA
     Dosage: (L) 7.5MG IM OR (G) 3.6MG SC
     Route: 058
     Dates: start: 20030512

REACTIONS (1)
  - EMBOLISM [None]
